FAERS Safety Report 5428595-X (Version None)
Quarter: 2007Q3

REPORT INFORMATION
  Report Type: 
  Country: None (occurrence: None)
  Receive Date: 20070731
  Receipt Date: 20070530
  Transmission Date: 20080115
  Serious: No
  Sender: FDA-Public Use
  Company Number: US200705007730

PATIENT
  Age: 40 Year
  Sex: Female
  Weight: 57.6068 kg

DRUGS (5)
  1. BYETTA [Suspect]
     Indication: TYPE 2 DIABETES MELLITUS
     Dosage: 5 UG, 2/D, SUBCUTANEOUS
     Route: 058
     Dates: start: 20070501
  2. EXENATIDE 5MCG PEN, DISPOSABLE DEVICE (EXENATIDE PEN (5MCG)) PEN, DISP [Concomitant]
  3. ASPIRIN [Concomitant]
  4. LANTUS [Concomitant]
  5. LISINOPRIL [Concomitant]

REACTIONS (7)
  - DIARRHOEA [None]
  - HEADACHE [None]
  - HYPERTENSION [None]
  - JOINT INJURY [None]
  - NAUSEA [None]
  - VOMITING [None]
  - WEIGHT INCREASED [None]
